FAERS Safety Report 19806987 (Version 2)
Quarter: 2021Q3

REPORT INFORMATION
  Report Type: Spontaneous
  Country: JP (occurrence: JP)
  Receive Date: 20210908
  Receipt Date: 20210922
  Transmission Date: 20211014
  Serious: Yes (Death, Other)
  Sender: FDA-Public Use
  Company Number: JP-DSJP-DSJ-2021-128726

PATIENT
  Age: 91 Year
  Sex: Female

DRUGS (26)
  1. CANDESARTAN CILEXETIL. [Concomitant]
     Active Substance: CANDESARTAN CILEXETIL
     Indication: HYPERTENSION
     Dosage: 4 MG, QD
     Route: 048
     Dates: start: 20210616, end: 20210617
  2. CALONAL [Concomitant]
     Active Substance: ACETAMINOPHEN
     Dosage: 200 MG, QD, AS NEEDED
     Route: 048
     Dates: start: 20210621, end: 20210716
  3. LANIRAPID [Concomitant]
     Active Substance: METILDIGOXIN
     Dosage: 0.05 MG, QD
     Route: 048
     Dates: start: 20210203, end: 20210716
  4. LIMAPROST ALFADEX [Concomitant]
     Active Substance: LIMAPROST
     Dosage: 5 UG, QD
     Route: 048
     Dates: start: 20210621, end: 20210716
  5. MAGMITT [Concomitant]
     Active Substance: MAGNESIUM OXIDE
     Dosage: 330 MG, BID
     Route: 048
     Dates: start: 20210611, end: 20210706
  6. MEMARY [Concomitant]
     Active Substance: MEMANTINE HYDROCHLORIDE
     Dosage: 10 MG, QD
     Route: 048
     Dates: start: 20191002, end: 20210610
  7. LIXIANA OD TABLETS [Suspect]
     Active Substance: EDOXABAN TOSYLATE
     Dosage: UNK UNK, QD
     Route: 048
     Dates: start: 20210619
  8. MEMARY [Concomitant]
     Active Substance: MEMANTINE HYDROCHLORIDE
     Dosage: 5 MG, QD
     Route: 048
     Dates: start: 20210611, end: 20210716
  9. LOSARTAN POTASSIUM. [Concomitant]
     Active Substance: LOSARTAN POTASSIUM
     Dosage: 50 MG, QD
     Route: 048
     Dates: start: 20190515, end: 20190610
  10. AMALUET [Concomitant]
     Active Substance: AMLODIPINE BESYLATE\ATORVASTATIN CALCIUM
     Indication: HYPERCHOLESTEROLAEMIA
     Dosage: UNK UNK, QD
     Route: 048
     Dates: start: 20190515, end: 20190610
  11. AMLODIPINE [AMLODIPINE BESILATE] [Concomitant]
     Active Substance: AMLODIPINE BESYLATE
     Dosage: 5 MG, QD
     Route: 048
     Dates: start: 20210707, end: 20210716
  12. CANDESARTAN CILEXETIL. [Concomitant]
     Active Substance: CANDESARTAN CILEXETIL
     Dosage: 4 MG, QD
     Route: 048
     Dates: start: 20210707, end: 20210716
  13. FERROUS CITRATE NA [Concomitant]
     Active Substance: SODIUM FERROUS CITRATE
     Dosage: 50 MG, BID
     Route: 048
     Dates: start: 20210611, end: 20210706
  14. SENNOSIDE A [Concomitant]
     Active Substance: SENNOSIDE A
     Dosage: 12 MG, QD
     Route: 048
     Dates: start: 20190902, end: 20210716
  15. EXELON [Concomitant]
     Active Substance: RIVASTIGMINE TARTRATE
     Dosage: 18 MG, QD
     Dates: start: 20190515
  16. AMLODIPINE [AMLODIPINE BESILATE] [Concomitant]
     Active Substance: AMLODIPINE BESYLATE
     Indication: HYPERTENSION
     Dosage: 5 MG, BID
     Route: 048
     Dates: start: 20210618, end: 20210706
  17. COMIRNATY [Concomitant]
     Active Substance: TOZINAMERAN
     Dosage: UNK UNK, SINGLE
     Route: 030
     Dates: start: 20210608, end: 20210608
  18. MEMARY [Concomitant]
     Active Substance: MEMANTINE HYDROCHLORIDE
     Dosage: 20 MG, QD
     Route: 048
     Dates: start: 20190515, end: 20191001
  19. LANSOPRAZOLE. [Concomitant]
     Active Substance: LANSOPRAZOLE
     Dosage: 15 MG, QD
     Route: 048
     Dates: start: 20190707, end: 20210716
  20. AMALUET [Concomitant]
     Active Substance: AMLODIPINE BESYLATE\ATORVASTATIN CALCIUM
     Indication: HYPERTENSION
  21. CANDESARTAN CILEXETIL. [Concomitant]
     Active Substance: CANDESARTAN CILEXETIL
     Dosage: 4 MG, BID
     Route: 048
     Dates: start: 20210618, end: 20210706
  22. BELSOMRA [Concomitant]
     Active Substance: SUVOREXANT
     Indication: INSOMNIA
     Dosage: 15 MG, QD
     Route: 048
     Dates: start: 20210611, end: 20210716
  23. ZOLPIDEM TARTRATE. [Concomitant]
     Active Substance: ZOLPIDEM TARTRATE
     Indication: INSOMNIA
     Dosage: 2.5 MG, QD
     Route: 048
     Dates: start: 20210611, end: 20210716
  24. MAGMITT [Concomitant]
     Active Substance: MAGNESIUM OXIDE
     Dosage: 330 MG, QD
     Route: 048
     Dates: start: 20210707, end: 20210716
  25. LIXIANA OD TABLETS [Suspect]
     Active Substance: EDOXABAN TOSYLATE
     Indication: ATRIAL FIBRILLATION
     Dosage: 30 MG, QD
     Route: 048
     Dates: start: 20190707, end: 20210610
  26. PICOSULFATE DE SODIUM [Concomitant]
     Indication: CONSTIPATION
     Dosage: 10 ML, QD
     Route: 048
     Dates: start: 20210707, end: 20210716

REACTIONS (3)
  - Embolism [Unknown]
  - Asthenia [Fatal]
  - Lower gastrointestinal haemorrhage [Fatal]

NARRATIVE: CASE EVENT DATE: 20210716
